FAERS Safety Report 9147829 (Version 2)
Quarter: 2013Q1

REPORT INFORMATION
  Report Type: Spontaneous
  Country: US (occurrence: US)
  Receive Date: 20130307
  Receipt Date: 20130326
  Transmission Date: 20140127
  Serious: No
  Sender: FDA-Public Use
  Company Number: US-TEVA-390254USA

PATIENT
  Age: 32 Year
  Sex: Male

DRUGS (2)
  1. NUVIGIL [Suspect]
     Dosage: 150 MILLIGRAM DAILY;
     Route: 048
     Dates: start: 20130301
  2. MINOCIN [Concomitant]

REACTIONS (4)
  - Heart rate increased [Recovered/Resolved]
  - Chest pain [Unknown]
  - Dizziness [Recovered/Resolved]
  - Chest discomfort [Recovered/Resolved]
